FAERS Safety Report 14773274 (Version 5)
Quarter: 2018Q4

REPORT INFORMATION
  Report Type: Report from Study
  Country: DE (occurrence: DE)
  Receive Date: 20180418
  Receipt Date: 20181218
  Transmission Date: 20190204
  Serious: Yes (Hospitalization)
  Sender: FDA-Public Use
  Company Number: DE-ACCORD-065644

PATIENT
  Age: 76 Year
  Sex: Male
  Weight: 85 kg

DRUGS (2)
  1. DOCETAXEL. [Suspect]
     Active Substance: DOCETAXEL
     Indication: LUNG ADENOCARCINOMA
     Dosage: 75 MG/M2 BODY SURFACE AREA
     Route: 042
     Dates: start: 20170904, end: 20170904
  2. VARGATEF [Suspect]
     Active Substance: NINTEDANIB
     Indication: LUNG ADENOCARCINOMA
     Dosage: DAILY DOSE: 400 MG MILLIGRAM(S) EVERY DAY
     Route: 048
     Dates: start: 20170905, end: 20170911

REACTIONS (8)
  - Diarrhoea [Unknown]
  - Fatigue [Unknown]
  - Chronic kidney disease [Recovered/Resolved]
  - Oesophageal pain [Unknown]
  - Anaemia [Unknown]
  - Constipation [Recovered/Resolved]
  - Oesophagitis [Unknown]
  - Vomiting [Unknown]

NARRATIVE: CASE EVENT DATE: 20170904
